FAERS Safety Report 6507761-6 (Version None)
Quarter: 2009Q4

REPORT INFORMATION
  Report Type: 
  Country: None (occurrence: None)
  Receive Date: 20091201
  Receipt Date: 20090115
  Transmission Date: 20100525
  Serious: Yes (Other)
  Sender: FDA-Public Use
  Company Number: 2009-189737-NL

PATIENT
  Sex: Female

DRUGS (3)
  1. NUVARING [Suspect]
     Indication: DRUG USE FOR UNKNOWN INDICATION
  2. ADIPEX [Suspect]
     Indication: WEIGHT LOSS DIET
     Dosage: PO
     Route: 048
  3. MIGRAINE MEDICATION (UNSPECIFIED) [Suspect]
     Indication: MIGRAINE

REACTIONS (2)
  - ISCHAEMIC STROKE [None]
  - THROMBOSIS [None]
